FAERS Safety Report 8109847-1 (Version None)
Quarter: 2012Q1

REPORT INFORMATION
  Report Type: 
  Country: None (occurrence: None)
  Receive Date: 20120202
  Receipt Date: 20120124
  Transmission Date: 20120608
  Serious: Yes (Other)
  Sender: FDA-Public Use
  Company Number: PHHY2011BR112567

PATIENT
  Sex: Female

DRUGS (11)
  1. ATROPINA ^HALEX E ISTAR^ [Concomitant]
     Indication: INTRAOCULAR PRESSURE TEST ABNORMAL
     Dosage: 10 %, BID
  2. CALCIUM [Concomitant]
     Indication: OSTEOPOROSIS
     Dosage: 1 DF, DAILY
  3. HYGROTON [Suspect]
     Dosage: 0.5 DF (12.5 MG), DAILY
  4. HYGROTON [Suspect]
     Indication: HYPERTENSION
     Dosage: 12.5 MG, Q48H
     Dates: start: 20111101
  5. EXFORGE [Suspect]
     Indication: HYPERTENSION
     Dosage: 1 DF(160/5 MG), UNK
     Dates: start: 20111101
  6. SIMVASTATIN [Suspect]
     Dosage: 40 MG, QD (IN THE MORNING)
     Dates: start: 20111101
  7. LOVAZA [Concomitant]
     Indication: BLOOD CHOLESTEROL
     Dosage: 1 DF, DAILY
  8. EMDURA [Concomitant]
     Indication: INTRAOCULAR PRESSURE TEST ABNORMAL
     Dosage: 15 ML, QD (ONCE IN THE MORNING)
  9. VITALUX PLUS [Concomitant]
     Indication: VISUAL IMPAIRMENT
     Dosage: 1 DF, DAILY
  10. AZOPT [Concomitant]
     Indication: INTRAOCULAR PRESSURE TEST ABNORMAL
     Dosage: 10 MG, BID
  11. SINGULAIR [Concomitant]
     Indication: ASTHMA
     Dosage: 10 MG, QD

REACTIONS (5)
  - URINARY RETENTION [None]
  - MUSCLE SPASMS [None]
  - GENERALISED OEDEMA [None]
  - DRY MOUTH [None]
  - TONGUE DRY [None]
